FAERS Safety Report 9547544 (Version 1)
Quarter: 2013Q2

REPORT INFORMATION
  Report Type: Spontaneous
  Country: US (occurrence: None)
  Receive Date: 20130606
  Receipt Date: 20130606
  Transmission Date: 20140414
  Serious: Yes (Hospitalization)
  Sender: FDA-Public Use
  Company Number: 163-POMAL-13042113

PATIENT
  Age: 78 Year
  Sex: Female
  Weight: 55.34 kg

DRUGS (10)
  1. POMALYST (POMALIDOMIDE) (4 MILLIGRAM, CAPSULES) [Suspect]
     Indication: PLASMA CELL MYELOMA
     Dosage: 4 MG, 21 IN 21 D, PO
     Route: 048
     Dates: start: 20130403, end: 20130409
  2. ACYCLOVIR (ACICLOVIR) (ACICLOVIR) [Concomitant]
  3. ELAVIL (AMITRIPTYLINE HYDROCHLORIDE) [Concomitant]
  4. FOLIC ACID [Concomitant]
  5. LEXAPRO (ESCITALOPRAM OXALATE) [Concomitant]
  6. HYDROMORPHONE [Concomitant]
  7. CA + D (OS-CAL) [Concomitant]
  8. MVI [Concomitant]
  9. FENTANYL [Concomitant]
  10. DEXAMETHASONE [Concomitant]

REACTIONS (2)
  - Plasma cell myeloma [None]
  - Fatigue [None]
